FAERS Safety Report 22184913 (Version 1)
Quarter: 2023Q2

REPORT INFORMATION
  Report Type: Spontaneous
  Country: US (occurrence: US)
  Receive Date: 20230407
  Receipt Date: 20230407
  Transmission Date: 20230722
  Serious: Yes (Hospitalization)
  Sender: FDA-Public Use
  Company Number: US-drreddys-SPO/USA/23/0163175

PATIENT
  Age: 58 Year
  Sex: Male

DRUGS (34)
  1. ZIPRASIDONE [Suspect]
     Active Substance: ZIPRASIDONE
     Indication: Delirium
     Dosage: ON DAY-07
  2. ZIPRASIDONE [Suspect]
     Active Substance: ZIPRASIDONE
     Dosage: ON DAY-06
  3. KETAMINE [Suspect]
     Active Substance: KETAMINE
     Indication: Delirium
     Dosage: TITRATED UP TO ON DAY-05 (WEANING PERIOD)
     Route: 042
  4. KETAMINE [Suspect]
     Active Substance: KETAMINE
     Dosage: ON DAY-01
     Route: 042
  5. KETAMINE [Suspect]
     Active Substance: KETAMINE
     Dosage: ON DAY-02
     Route: 042
  6. KETAMINE [Suspect]
     Active Substance: KETAMINE
     Dosage: DAY-08, WEANING PERIOD
     Route: 042
  7. KETAMINE [Suspect]
     Active Substance: KETAMINE
     Dosage: ON DAY-02
     Route: 042
  8. KETAMINE [Suspect]
     Active Substance: KETAMINE
     Dosage: TITRATED UP TO (ON DAY-02)
     Route: 042
  9. KETAMINE [Suspect]
     Active Substance: KETAMINE
     Dosage: TITRATED UP TO 0.125 MG/KG/HR (ON DAY-06, WEANING PERIOD)
     Route: 042
  10. KETAMINE [Suspect]
     Active Substance: KETAMINE
     Dosage: TITRATED UP TO (DAY-07, WEANING PERIOD)
     Route: 042
  11. KETAMINE [Suspect]
     Active Substance: KETAMINE
     Dosage: ON DAY-01
     Route: 042
  12. KETAMINE [Suspect]
     Active Substance: KETAMINE
     Dosage: RESUME AT 0.125 MG/KG/HR FOR ~2.5 HOURS. ON DAY-09
     Route: 042
  13. KETAMINE [Suspect]
     Active Substance: KETAMINE
     Dosage: ON DAY-02
     Route: 042
  14. KETAMINE [Suspect]
     Active Substance: KETAMINE
     Dosage: ON DAY-03 AND DAY-04
     Route: 042
  15. LORAZEPAM [Concomitant]
     Active Substance: LORAZEPAM
     Indication: Delirium
     Dosage: ON DAY-03 (SCHEDULED DOSING)
  16. LORAZEPAM [Concomitant]
     Active Substance: LORAZEPAM
     Dosage: ON DAY-06 (PRN DOSING)
  17. LORAZEPAM [Concomitant]
     Active Substance: LORAZEPAM
     Dosage: ON DAY-01 (SCHEDULED DOSING)
  18. LORAZEPAM [Concomitant]
     Active Substance: LORAZEPAM
     Dosage: ON DAY-04 (SCHEDULED DOSING)
  19. LORAZEPAM [Concomitant]
     Active Substance: LORAZEPAM
     Dosage: 5 TIMES A DAY ON DAY-07 (PRN DOSING)
  20. LORAZEPAM [Concomitant]
     Active Substance: LORAZEPAM
     Dosage: ON DAY-05 (PRN DOSING)
  21. LORAZEPAM [Concomitant]
     Active Substance: LORAZEPAM
     Dosage: ON DAY-02 (SCHEDULED DOSING)
  22. VALPROIC ACID [Concomitant]
     Active Substance: VALPROIC ACID
     Indication: Delirium
     Dosage: FROM DAY-05 TO DAY-07
  23. VALPROIC ACID [Concomitant]
     Active Substance: VALPROIC ACID
     Dosage: ON DAY-03
  24. VALPROIC ACID [Concomitant]
     Active Substance: VALPROIC ACID
     Dosage: ON DAY-08
  25. VALPROIC ACID [Concomitant]
     Active Substance: VALPROIC ACID
     Dosage: ON DAY-04
  26. VALPROIC ACID [Concomitant]
     Active Substance: VALPROIC ACID
     Dosage: ON DAY-02
  27. VALPROIC ACID [Concomitant]
     Active Substance: VALPROIC ACID
     Dosage: TOTAL:1852MG (ON DAY-02)
  28. GABAPENTIN [Concomitant]
     Active Substance: GABAPENTIN
     Indication: Neuralgia
     Dosage: FROM DAY-05 TO DAY-08
  29. GABAPENTIN [Concomitant]
     Active Substance: GABAPENTIN
     Dosage: ON DAY-01
  30. GABAPENTIN [Concomitant]
     Active Substance: GABAPENTIN
     Dosage: ON DAY-02
  31. GABAPENTIN [Concomitant]
     Active Substance: GABAPENTIN
     Dosage: ON DAY-02
  32. GABAPENTIN [Concomitant]
     Active Substance: GABAPENTIN
     Dosage: ON DAY-04
  33. GABAPENTIN [Concomitant]
     Active Substance: GABAPENTIN
     Dosage: ON DAY-04
  34. GABAPENTIN [Concomitant]
     Active Substance: GABAPENTIN
     Dosage: ON DAY-03

REACTIONS (2)
  - Sedation complication [Unknown]
  - Product use in unapproved indication [Unknown]
